FAERS Safety Report 11728780 (Version 1)
Quarter: 2015Q4

REPORT INFORMATION
  Report Type: Spontaneous
  Country: ES (occurrence: ES)
  Receive Date: 20151112
  Receipt Date: 20151112
  Transmission Date: 20160304
  Serious: Yes (Hospitalization)
  Sender: FDA-Public Use
  Company Number: ES-MYLANLABS-2015M1039022

PATIENT

DRUGS (2)
  1. VALPROATE [Suspect]
     Active Substance: VALPROATE SODIUM
     Indication: PRODUCT USED FOR UNKNOWN INDICATION
     Route: 048
  2. OLANZAPINE. [Suspect]
     Active Substance: OLANZAPINE
     Indication: PRODUCT USED FOR UNKNOWN INDICATION
     Dosage: 300MG
     Route: 048

REACTIONS (9)
  - Blood lactic acid increased [Recovered/Resolved]
  - Suicide attempt [Recovering/Resolving]
  - Thrombocytopenia [Recovering/Resolving]
  - Intentional overdose [Recovering/Resolving]
  - Hyperammonaemia [Recovered/Resolved]
  - Toxicity to various agents [Recovering/Resolving]
  - Hypernatraemia [Recovered/Resolved]
  - Hypocalcaemia [Recovering/Resolving]
  - Hypokalaemia [Recovered/Resolved]
